FAERS Safety Report 13049698 (Version 1)
Quarter: 2016Q4

REPORT INFORMATION
  Report Type: Report from Study
  Country: None (occurrence: US)
  Receive Date: 20161221
  Receipt Date: 20161221
  Transmission Date: 20170207
  Serious: No
  Sender: FDA-Public Use
  Company Number: US-BIOVITRUM-2016US0027

PATIENT
  Age: 35 Year
  Sex: Female

DRUGS (1)
  1. KINERET [Suspect]
     Active Substance: ANAKINRA
     Dosage: 100 MG DAILY
     Route: 058
     Dates: start: 201601

REACTIONS (6)
  - Injection site urticaria [Not Recovered/Not Resolved]
  - Injection site pain [Not Recovered/Not Resolved]
  - Nausea [Not Recovered/Not Resolved]
  - Injection site rash [Not Recovered/Not Resolved]
  - Diarrhoea [Not Recovered/Not Resolved]
  - Dizziness [Not Recovered/Not Resolved]

NARRATIVE: CASE EVENT DATE: 201601
